FAERS Safety Report 24992541 (Version 5)
Quarter: 2025Q4

REPORT INFORMATION
  Report Type: Report from Study
  Country: EU (occurrence: EU)
  Receive Date: 20250220
  Receipt Date: 20251205
  Transmission Date: 20260118
  Serious: Yes (Death, Life-Threatening, Disabling, Other)
  Sender: ABBVIE
  Company Number: EU-ABBVIE-6143322

PATIENT
  Age: 73 Year
  Sex: Female

DRUGS (62)
  1. VENETOCLAX [Suspect]
     Active Substance: VENETOCLAX
     Indication: Acute myeloid leukaemia
     Dosage: 100 MILLIGRAM?DURATION TEXT: DOSE PERMANENTLY DISCONTINUED
     Route: 048
     Dates: start: 20240815, end: 20240819
  2. VENETOCLAX [Suspect]
     Active Substance: VENETOCLAX
     Indication: Acute myeloid leukaemia
     Dosage: 100 MILLIGRAM?DURATION TEXT: END OF CYCLE (28 DAYS)
     Route: 048
     Dates: start: 20240718, end: 20240814
  3. CHOLECALCIFEROL [Concomitant]
     Active Substance: CHOLECALCIFEROL
     Indication: Prophylaxis
     Dosage: 30 DROP
     Route: 048
     Dates: start: 20240724, end: 20240724
  4. CHOLECALCIFEROL [Concomitant]
     Active Substance: CHOLECALCIFEROL
     Indication: Prophylaxis
     Dosage: 30 DROP DAILY
     Route: 048
     Dates: start: 20240814, end: 20240814
  5. SODIUM CHLORIDE [Concomitant]
     Active Substance: SODIUM CHLORIDE
     Indication: Dehydration
     Dosage: 3.5 U DAILY
     Route: 042
     Dates: start: 20240717, end: 20240825
  6. ACYCLOVIR [Concomitant]
     Active Substance: ACYCLOVIR
     Indication: Antiviral prophylaxis
     Route: 048
     Dates: start: 2017, end: 20240822
  7. PIPERACILLIN AND TAZOBACTAM [Concomitant]
     Active Substance: PIPERACILLIN SODIUM\TAZOBACTAM SODIUM
     Indication: Infection
     Dosage: 4000+500 MG 3 TIMES PER DAY
     Route: 042
     Dates: start: 20240815, end: 20240823
  8. PIPERACILLIN AND TAZOBACTAM [Concomitant]
     Active Substance: PIPERACILLIN SODIUM\TAZOBACTAM SODIUM
     Indication: Infection
     Dosage: 4.5 G 3 TIMES PER DAY
     Route: 042
     Dates: start: 20240702, end: 20240709
  9. CALCIUM [Concomitant]
     Active Substance: CALCIUM
     Indication: Prophylaxis
     Dosage: 1000 + 1250 MG 2 TIMES PER DAY
     Route: 048
     Dates: start: 2024, end: 20240822
  10. ONDANSETRON [Concomitant]
     Active Substance: ONDANSETRON
     Indication: Prophylaxis of nausea and vomiting
     Dosage: 8 MG AS NEEDED
     Route: 042
     Dates: start: 20240717, end: 20240726
  11. PREGABALIN [Concomitant]
     Active Substance: PREGABALIN
     Indication: Anxiety disorder
     Dosage: 75 MG 2 TIMES  PER DAY
     Route: 048
     Dates: start: 20240702, end: 20240810
  12. PREGABALIN [Concomitant]
     Active Substance: PREGABALIN
     Indication: Anxiety disorder
     Dosage: 75 MG 2 TIMES  PER DAY
     Route: 048
     Dates: start: 20240702, end: 20240822
  13. Luvion [Concomitant]
     Indication: Prophylaxis
     Dosage: 200 MILLIGRAM DAILY
     Route: 042
     Dates: start: 20240709, end: 20240714
  14. SULFAMETHOXAZOLE\TRIMETHOPRIM [Concomitant]
     Active Substance: SULFAMETHOXAZOLE\TRIMETHOPRIM
     Indication: Antibiotic prophylaxis
     Dosage: 160+800 MG
     Route: 048
     Dates: start: 20240703, end: 20240823
  15. DAPTOMYCIN [Concomitant]
     Active Substance: DAPTOMYCIN
     Indication: Infection
     Route: 042
     Dates: start: 20240705, end: 20240705
  16. DAPTOMYCIN [Concomitant]
     Active Substance: DAPTOMYCIN
     Indication: Infection
     Route: 042
     Dates: start: 20240706, end: 20240708
  17. CHLORHEXIDINE [Concomitant]
     Active Substance: CHLORHEXIDINE
     Indication: Infection prophylaxis
     Dosage: 1 U 4 TIMES PER DAY
     Route: 048
     Dates: start: 20240702, end: 20240822
  18. FIBRINOGEN HUMAN [Concomitant]
     Active Substance: FIBRINOGEN HUMAN
     Indication: Haemorrhage prophylaxis
     Route: 042
     Dates: start: 20240730, end: 20240801
  19. ANTITHROMBIN III HUMAN [Concomitant]
     Active Substance: ANTITHROMBIN III HUMAN
     Indication: Thrombosis prophylaxis
     Dosage: 2000 U
     Route: 042
     Dates: start: 20240823, end: 20240823
  20. ANTITHROMBIN III HUMAN [Concomitant]
     Active Substance: ANTITHROMBIN III HUMAN
     Indication: Thrombosis prophylaxis
     Dosage: 2000  U EVERY OTHER DAY
     Route: 042
     Dates: start: 20240703, end: 20240707
  21. ANTITHROMBIN III HUMAN [Concomitant]
     Active Substance: ANTITHROMBIN III HUMAN
     Indication: Thrombosis prophylaxis
     Dosage: 2000 U EVERY OTHER DAY
     Route: 042
     Dates: start: 20240710, end: 20240712
  22. MEROPENEM [Concomitant]
     Active Substance: MEROPENEM
     Indication: Antibiotic prophylaxis
     Dosage: 1 G
     Route: 042
     Dates: start: 20240723, end: 20240725
  23. MEROPENEM [Concomitant]
     Active Substance: MEROPENEM
     Indication: Antibiotic prophylaxis
     Dosage: 2 G
     Route: 042
     Dates: start: 20240709, end: 20240722
  24. NYSTATIN [Concomitant]
     Active Substance: NYSTATIN
     Indication: Antifungal prophylaxis
     Dosage: 1 U, 4 TIMES PER DAY
     Route: 048
     Dates: start: 2017, end: 20240822
  25. FUROSEMIDE [Concomitant]
     Active Substance: FUROSEMIDE
     Indication: Prophylaxis
     Route: 042
     Dates: start: 20240709, end: 20240715
  26. FUROSEMIDE [Concomitant]
     Active Substance: FUROSEMIDE
     Indication: Prophylaxis
     Route: 042
     Dates: start: 20240721, end: 20240731
  27. FUROSEMIDE [Concomitant]
     Active Substance: FUROSEMIDE
     Indication: Prophylaxis
     Dosage: 2 MILLILITER DAILY
     Route: 042
     Dates: start: 20240716, end: 20240716
  28. FUROSEMIDE [Concomitant]
     Active Substance: FUROSEMIDE
     Indication: Prophylaxis
     Dosage: TIME INTERVAL: 0.33333333 DAYS
     Route: 042
     Dates: start: 20240717, end: 20240720
  29. LINEZOLID [Concomitant]
     Active Substance: LINEZOLID
     Indication: Antibiotic prophylaxis
     Route: 042
     Dates: start: 20240704, end: 20240823
  30. SERTRALINE HYDROCHLORIDE [Concomitant]
     Active Substance: SERTRALINE HYDROCHLORIDE
     Indication: Anxiety disorder
     Route: 048
     Dates: start: 20240703, end: 20240822
  31. ALLOPURINOL [Concomitant]
     Active Substance: ALLOPURINOL
     Indication: Prophylaxis
     Route: 048
     Dates: start: 20240702, end: 20240810
  32. METFORMIN [Concomitant]
     Active Substance: METFORMIN HYDROCHLORIDE
     Indication: Type 2 diabetes mellitus
     Dosage: 500 MG 2 TIMES PER DAY
     Route: 048
     Dates: start: 2017, end: 20240822
  33. LORAZEPAM [Concomitant]
     Active Substance: LORAZEPAM
     Indication: Anxiety disorder
     Dosage: 0.5 MG 2 TIMES PER DAY
     Route: 048
     Dates: start: 2018, end: 20240822
  34. BROMAZEPAM [Concomitant]
     Active Substance: BROMAZEPAM
     Indication: Prophylaxis
     Dosage: 1 DROP DAILY
     Route: 048
     Dates: start: 20240719, end: 20240719
  35. FUROSEMIDE [Concomitant]
     Active Substance: FUROSEMIDE
     Indication: Prophylaxis
     Dosage: 125 MG
     Route: 042
     Dates: start: 20240708, end: 20240708
  36. POSACONAZOLE [Concomitant]
     Active Substance: POSACONAZOLE
     Indication: Antifungal prophylaxis
     Dosage: 300 MILLIGRAM
     Route: 048
     Dates: start: 20240709, end: 20240822
  37. MIDAZOLAM [Concomitant]
     Active Substance: MIDAZOLAM
     Indication: Sedation
     Dosage: 5 U
     Route: 042
     Dates: start: 20240823, end: 20240825
  38. Oxycodone/naloxone g.l. [Concomitant]
     Indication: Back pain
     Dosage: 10+5 MG, 2 TIMES PER DAY
     Route: 048
     Dates: start: 2017, end: 20240822
  39. PHYTONADIONE [Concomitant]
     Active Substance: PHYTONADIONE
     Indication: Haemorrhage prophylaxis
     Dosage: 10 MG
     Route: 042
     Dates: start: 20240726, end: 20240726
  40. PHYTONADIONE [Concomitant]
     Active Substance: PHYTONADIONE
     Indication: Haemorrhage prophylaxis
     Dosage: 10 MG
     Route: 042
     Dates: start: 20240823, end: 20240823
  41. LOPERAMIDE [Concomitant]
     Active Substance: LOPERAMIDE
     Indication: Prophylaxis against diarrhoea
     Route: 048
     Dates: start: 20240718, end: 20240718
  42. Kcl retard slow k [Concomitant]
     Indication: Prophylaxis
     Dosage: 1200 MG 2 TIMES PER DAY
     Route: 048
     Dates: start: 20240709, end: 20240822
  43. PANTOPRAZOLE [Concomitant]
     Active Substance: PANTOPRAZOLE
     Indication: Gastrointestinal disorder prophylaxis
     Dosage: 20 MILLIGRAM
     Route: 048
     Dates: start: 20240702, end: 20240708
  44. PANTOPRAZOLE [Concomitant]
     Active Substance: PANTOPRAZOLE
     Indication: Gastrointestinal disorder prophylaxis
     Dosage: 20 MILLIGRAM DAILY
     Route: 048
     Dates: start: 20240702, end: 20240708
  45. SODIUM BICARBONATE [Concomitant]
     Active Substance: SODIUM BICARBONATE
     Indication: Prophylaxis
     Dosage: 500 MG 2 TIMES PER DAY
     Route: 048
     Dates: start: 20240714, end: 20240721
  46. SODIUM BICARBONATE [Concomitant]
     Active Substance: SODIUM BICARBONATE
     Indication: Prophylaxis
     Dosage: 1000 MG 2 TIMES PER DAY
     Route: 048
     Dates: start: 20240722, end: 20240729
  47. AZACITIDINE [Suspect]
     Active Substance: AZACITIDINE
     Indication: Acute myeloid leukaemia
     Dosage: 75 MG/M2 BSA?DURATION TEXT: END OF CYCLE (7 DAYS)
     Route: 065
     Dates: start: 20240718, end: 20240724
  48. ACETAMINOPHEN [Concomitant]
     Active Substance: ACETAMINOPHEN
     Indication: Prophylaxis
     Dosage: 1 G AS NEEDED
     Route: 042
     Dates: start: 20240820, end: 20240823
  49. INSULIN GLULISINE [Concomitant]
     Active Substance: INSULIN GLULISINE
     Indication: Type 2 diabetes mellitus
     Dosage: 50 ML
     Route: 058
     Dates: start: 20240811, end: 20240813
  50. INSULIN GLULISINE [Concomitant]
     Active Substance: INSULIN GLULISINE
     Indication: Type 2 diabetes mellitus
     Dosage: 50 MILLILITER DAILY
     Route: 058
     Dates: start: 20240728, end: 20240729
  51. INSULIN GLULISINE [Concomitant]
     Active Substance: INSULIN GLULISINE
     Indication: Type 2 diabetes mellitus
     Dosage: 50 ML 2 TIMES PER DAY
     Route: 058
     Dates: start: 20240807, end: 20240807
  52. INSULIN GLULISINE [Concomitant]
     Active Substance: INSULIN GLULISINE
     Indication: Type 2 diabetes mellitus
     Dosage: 50 MILLILITER DAILY
     Route: 058
     Dates: start: 20240805, end: 20240806
  53. INSULIN GLULISINE [Concomitant]
     Active Substance: INSULIN GLULISINE
     Indication: Type 2 diabetes mellitus
     Dosage: 50 MILLILITER DAILY
     Route: 058
     Dates: start: 20240803, end: 20240803
  54. INSULIN GLULISINE [Concomitant]
     Active Substance: INSULIN GLULISINE
     Indication: Type 2 diabetes mellitus
     Dosage: 50 MILLILITER DAILY
     Route: 058
     Dates: start: 20240808, end: 20240809
  55. INSULIN GLULISINE [Concomitant]
     Active Substance: INSULIN GLULISINE
     Indication: Type 2 diabetes mellitus
     Dosage: 50 ML EVERY OTHER DAY
     Route: 058
     Dates: start: 20240811, end: 20240813
  56. ATORVASTATIN [Concomitant]
     Active Substance: ATORVASTATIN
     Indication: Cardiovascular disorder
     Route: 048
     Dates: start: 2024, end: 20240822
  57. POTASSIUM CHLORIDE [Concomitant]
     Active Substance: POTASSIUM CHLORIDE
     Indication: Prophylaxis
     Dosage: 40 U DAILY
     Route: 042
     Dates: start: 20240724, end: 20240726
  58. POTASSIUM CHLORIDE [Concomitant]
     Active Substance: POTASSIUM CHLORIDE
     Indication: Prophylaxis
     Dosage: 40 U EVERY OTHER DAY
     Route: 042
     Dates: start: 20240729, end: 20240731
  59. POTASSIUM CHLORIDE [Concomitant]
     Active Substance: POTASSIUM CHLORIDE
     Indication: Prophylaxis
     Dosage: 40 U DAILY
     Route: 042
     Dates: start: 20240820, end: 20240821
  60. POTASSIUM CHLORIDE [Concomitant]
     Active Substance: POTASSIUM CHLORIDE
     Indication: Prophylaxis
     Dosage: 100 U DAILY
     Route: 042
     Dates: start: 20240822, end: 20240822
  61. DEXAMETHASONE [Concomitant]
     Active Substance: DEXAMETHASONE
     Indication: Subdural haematoma evacuation
     Dosage: TIME INTERVAL: 0.33333333 DAYS
     Route: 042
     Dates: start: 20240722, end: 20240809
  62. LEVOTHYROXINE [Concomitant]
     Active Substance: LEVOTHYROXINE
     Indication: Hypothyroidism
     Route: 048
     Dates: start: 2018, end: 20240822

REACTIONS (4)
  - Disease progression [Fatal]
  - Subdural haematoma [Recovered/Resolved]
  - Escherichia infection [Unknown]
  - Staphylococcal infection [Unknown]

NARRATIVE: CASE EVENT DATE: 20240720
